FAERS Safety Report 7798780-0 (Version None)
Quarter: 2011Q4

REPORT INFORMATION
  Report Type: 
  Country: None (occurrence: None)
  Receive Date: 20111006
  Receipt Date: 20110413
  Transmission Date: 20120403
  Serious: Yes (Other)
  Sender: FDA-Public Use
  Company Number: US-BAYER-2011-017673

PATIENT
  Sex: Male
  Weight: 81 kg

DRUGS (13)
  1. MAGNEVIST [Suspect]
     Indication: ANGIOGRAM
  2. OPTIMARK [Suspect]
     Indication: NUCLEAR MAGNETIC RESONANCE IMAGING
  3. MULTIHANCE [Suspect]
     Indication: ANGIOGRAM
  4. PROHANCE [Suspect]
     Indication: ANGIOGRAM
     Dosage: 20 ML, ONCE
     Dates: start: 20040325, end: 20040325
  5. OMNISCAN [Suspect]
  6. MULTIHANCE [Suspect]
     Indication: NUCLEAR MAGNETIC RESONANCE IMAGING
  7. OMNISCAN [Suspect]
     Dosage: 20 ML, ONCE
     Dates: start: 20040730, end: 20040730
  8. PROHANCE [Suspect]
     Indication: NUCLEAR MAGNETIC RESONANCE IMAGING
     Dosage: 20 ML, ONCE
     Dates: start: 20040218, end: 20040218
  9. PROHANCE [Suspect]
  10. OMNISCAN [Suspect]
     Indication: NUCLEAR MAGNETIC RESONANCE IMAGING
     Dosage: 16 ML, ONCE
     Dates: start: 20040503, end: 20040503
  11. OPTIMARK [Suspect]
     Indication: ANGIOGRAM
  12. MAGNEVIST [Suspect]
     Indication: NUCLEAR MAGNETIC RESONANCE IMAGING
  13. OMNISCAN [Suspect]
     Indication: ANGIOGRAM
     Dosage: 17 ML, ONCE
     Dates: start: 20040617, end: 20040617

REACTIONS (9)
  - PAIN [None]
  - PRURITUS [None]
  - SKIN HYPERTROPHY [None]
  - JOINT RANGE OF MOTION DECREASED [None]
  - DRY SKIN [None]
  - SKIN HYPERPIGMENTATION [None]
  - MOBILITY DECREASED [None]
  - SKIN TIGHTNESS [None]
  - NEPHROGENIC SYSTEMIC FIBROSIS [None]
